FAERS Safety Report 25100067 (Version 2)
Quarter: 2025Q2

REPORT INFORMATION
  Report Type: Spontaneous
  Country: US (occurrence: US)
  Receive Date: 20250320
  Receipt Date: 20250620
  Transmission Date: 20250716
  Serious: No
  Sender: REGENERON
  Company Number: US-REGENERON PHARMACEUTICALS, INC.-2025-037167

PATIENT
  Sex: Female

DRUGS (3)
  1. EYLEA HD [Suspect]
     Active Substance: AFLIBERCEPT
     Indication: Product used for unknown indication
     Dates: start: 20241003, end: 20241003
  2. EYLEA HD [Suspect]
     Active Substance: AFLIBERCEPT
     Dates: start: 20241205, end: 20241205
  3. EYLEA HD [Suspect]
     Active Substance: AFLIBERCEPT
     Dates: start: 20250123, end: 20250123

REACTIONS (4)
  - Dry eye [Unknown]
  - Visual impairment [Unknown]
  - Eye pain [Unknown]
  - Therapeutic response shortened [Unknown]

NARRATIVE: CASE EVENT DATE: 20250224
